FAERS Safety Report 19684951 (Version 1)
Quarter: 2021Q3

REPORT INFORMATION
  Report Type: Spontaneous
  Country: US (occurrence: US)
  Receive Date: 20210811
  Receipt Date: 20210811
  Transmission Date: 20211014
  Serious: No
  Sender: FDA-Public Use
  Company Number: None

PATIENT
  Age: 64 Year
  Sex: Female
  Weight: 63.9 kg

DRUGS (9)
  1. PROTEIN SUPPLEMENT [Concomitant]
     Active Substance: PROTEIN
  2. VITAMIN B [Concomitant]
     Active Substance: VITAMIN B
  3. THYROID MEDICATION [Concomitant]
     Active Substance: UNSPECIFIED INGREDIENT
  4. CALCIUM [Concomitant]
     Active Substance: CALCIUM
  5. IMMUNE SUPPORT [Concomitant]
  6. CHOLESTEROL [Concomitant]
     Active Substance: CHOLESTEROL
  7. AVASTIN [Suspect]
     Active Substance: BEVACIZUMAB
     Indication: NEOPLASM MALIGNANT
  8. MULTI VITAMIN [Concomitant]
     Active Substance: VITAMINS
  9. VITAMIN D3 [Concomitant]
     Active Substance: CHOLECALCIFEROL

REACTIONS (2)
  - Gait disturbance [None]
  - Arthritis [None]

NARRATIVE: CASE EVENT DATE: 20210223
